FAERS Safety Report 8102344-9 (Version None)
Quarter: 2012Q1

REPORT INFORMATION
  Report Type: 
  Country: None (occurrence: None)
  Receive Date: 20120131
  Receipt Date: 20120131
  Transmission Date: 20120608
  Serious: Yes (Hospitalization, Other)
  Sender: FDA-Public Use
  Company Number: None

PATIENT
  Sex: Female

DRUGS (1)
  1. PROZAC [Suspect]
     Dosage: 1 PILL  - 10 MG
     Dates: start: 20111019

REACTIONS (9)
  - OROPHARYNGEAL PAIN [None]
  - INSOMNIA [None]
  - TINNITUS [None]
  - GASTRIC DISORDER [None]
  - BLOOD PRESSURE INCREASED [None]
  - DRUG HYPERSENSITIVITY [None]
  - MUSCLE SPASMS [None]
  - PAIN [None]
  - DECREASED APPETITE [None]
